FAERS Safety Report 7478857-X (Version None)
Quarter: 2011Q2

REPORT INFORMATION
  Report Type: 
  Country: None (occurrence: None)
  Receive Date: 20110513
  Receipt Date: 20110509
  Transmission Date: 20111010
  Serious: Yes (Other)
  Sender: FDA-Public Use
  Company Number: US-ROCHE-776223

PATIENT

DRUGS (1)
  1. CEFTRIAXONE SODIUM [Suspect]
     Route: 065

REACTIONS (2)
  - HAEMOLYSIS [None]
  - DRUG SPECIFIC ANTIBODY PRESENT [None]
